FAERS Safety Report 6775303-6 (Version None)
Quarter: 2010Q2

REPORT INFORMATION
  Report Type: 
  Country: None (occurrence: None)
  Receive Date: 20100617
  Receipt Date: 20100607
  Transmission Date: 20101027
  Serious: Yes (Other)
  Sender: FDA-Public Use
  Company Number: US-PFIZER INC-2010072879

PATIENT
  Sex: Female

DRUGS (12)
  1. ZOLOFT [Suspect]
     Indication: DEPRESSION
     Dosage: HIGH DOSE
  2. CELEBREX [Suspect]
     Indication: ARTHRITIS
     Dosage: UNK
  3. NEURONTIN [Suspect]
     Indication: NEUROPATHY PERIPHERAL
     Dosage: 300 MG, DAILY
  4. PRISTIQ [Suspect]
     Indication: DEPRESSION
     Dosage: 50 MG, DAILY
     Dates: start: 20100524
  5. ABILIFY [Suspect]
     Indication: DEPRESSION
     Dosage: UNK
  6. PRANDIN [Concomitant]
     Dosage: 2 MG, UNK
  7. BENICAR [Concomitant]
     Dosage: 40/25, DAILY
  8. TYLENOL (CAPLET) [Concomitant]
     Dosage: UNK, 2X/DAY
  9. ALPHA BETIC [Concomitant]
     Dosage: UNK
  10. CALCIUM WITH VITAMIN D [Concomitant]
     Dosage: UNK
  11. PROTONIX [Concomitant]
     Dosage: 40 MG, UNK
  12. ELAVIL [Concomitant]
     Dosage: 10 MG, 1X/DAY

REACTIONS (7)
  - AGITATION [None]
  - ARTHRITIS [None]
  - DEPRESSION [None]
  - FATIGUE [None]
  - MOOD ALTERED [None]
  - NEUROPATHY PERIPHERAL [None]
  - WEIGHT INCREASED [None]
